FAERS Safety Report 7118571-3 (Version None)
Quarter: 2010Q4

REPORT INFORMATION
  Report Type: 
  Country: None (occurrence: None)
  Receive Date: 20101123
  Receipt Date: 20101119
  Transmission Date: 20110411
  Serious: Yes (Hospitalization)
  Sender: FDA-Public Use
  Company Number: CH-BAYER-201047524GPV

PATIENT
  Age: 83 Year
  Sex: Male

DRUGS (3)
  1. ASPIRIN [Suspect]
     Indication: PRODUCT USED FOR UNKNOWN INDICATION
     Route: 048
     Dates: end: 20100128
  2. FRAXIFORTE [Suspect]
     Indication: PRODUCT USED FOR UNKNOWN INDICATION
     Route: 058
     Dates: start: 20100101, end: 20100128
  3. TOREM [Concomitant]

REACTIONS (4)
  - ANAEMIA [None]
  - ASPIRATION [None]
  - MOUTH HAEMORRHAGE [None]
  - RESPIRATORY ARREST [None]
